FAERS Safety Report 13136161 (Version 1)
Quarter: 2017Q1

REPORT INFORMATION
  Report Type: Spontaneous
  Country: GB (occurrence: GB)
  Receive Date: 20170121
  Receipt Date: 20170121
  Transmission Date: 20170428
  Serious: Yes (Other)
  Sender: FDA-Public Use
  Company Number: GB-ACCORD-047461

PATIENT
  Age: 80 Year
  Sex: Male
  Weight: 76.2 kg

DRUGS (2)
  1. SERENOA REPENS [Concomitant]
  2. FINASTERIDE. [Suspect]
     Active Substance: FINASTERIDE
     Indication: BENIGN PROSTATIC HYPERPLASIA
     Dosage: IN THE MORNING
     Route: 048
     Dates: start: 20161124, end: 20161202

REACTIONS (2)
  - Dysuria [Recovering/Resolving]
  - Genital pain [Recovering/Resolving]

NARRATIVE: CASE EVENT DATE: 20161128
